FAERS Safety Report 13654162 (Version 2)
Quarter: 2017Q3

REPORT INFORMATION
  Report Type: Spontaneous
  Country: US (occurrence: US)
  Receive Date: 20170614
  Receipt Date: 20170704
  Transmission Date: 20171127
  Serious: No
  Sender: FDA-Public Use
  Company Number: US-BRISTOL-MYERS SQUIBB COMPANY-BMS-2017-050851

PATIENT

DRUGS (1)
  1. ABILIFY [Suspect]
     Active Substance: ARIPIPRAZOLE
     Indication: BIPOLAR DISORDER
     Dosage: 1 DF, UNK
     Route: 048
     Dates: start: 20140406, end: 20160719

REACTIONS (6)
  - Gambling disorder [Unknown]
  - Obsessive-compulsive disorder [Unknown]
  - Pain [Unknown]
  - Anxiety [Unknown]
  - Compulsive shopping [Unknown]
  - Injury [Unknown]
